FAERS Safety Report 19045521 (Version 1)
Quarter: 2021Q1

REPORT INFORMATION
  Report Type: Spontaneous
  Country: US (occurrence: US)
  Receive Date: 20210323
  Receipt Date: 20210323
  Transmission Date: 20210420
  Serious: Yes (Other)
  Sender: FDA-Public Use
  Company Number: None

PATIENT
  Age: 36 Year
  Sex: Female
  Weight: 99 kg

DRUGS (3)
  1. METFORMIN 100MG BID [Concomitant]
     Dates: start: 20190701
  2. BAMLANIVIMAB. [Suspect]
     Active Substance: BAMLANIVIMAB
     Indication: COVID-19
     Dosage: ?          OTHER FREQUENCY:X1;?
     Route: 041
     Dates: start: 20210323, end: 20210323
  3. LABETALOL 200MG BID [Concomitant]
     Dates: start: 20210223

REACTIONS (2)
  - Rash erythematous [None]
  - Pallor [None]

NARRATIVE: CASE EVENT DATE: 20210323
